FAERS Safety Report 8064515-X (Version None)
Quarter: 2012Q1

REPORT INFORMATION
  Report Type: 
  Country: None (occurrence: None)
  Receive Date: 20120123
  Receipt Date: 20120117
  Transmission Date: 20120608
  Serious: Yes (Other)
  Sender: FDA-Public Use
  Company Number: GB-PFIZER INC-2011298425

PATIENT
  Age: 40 Year
  Sex: Male

DRUGS (2)
  1. LYRICA [Suspect]
     Indication: ANXIETY
     Dosage: 300 MG/DAY
  2. LYRICA [Suspect]
     Dosage: 300 MG, 2X/DAY
     Dates: end: 20111001

REACTIONS (4)
  - ANXIETY [None]
  - DEPRESSED MOOD [None]
  - DRUG WITHDRAWAL SYNDROME [None]
  - SUICIDAL IDEATION [None]
